FAERS Safety Report 6033400-7 (Version None)
Quarter: 2009Q1

REPORT INFORMATION
  Report Type: 
  Country: None (occurrence: None)
  Receive Date: 20090109
  Receipt Date: 20090105
  Transmission Date: 20090719
  Serious: Yes (Death, Life-Threatening, Hospitalization, Disabling)
  Sender: FDA-Public Use
  Company Number: US-AMGEN-US327276

PATIENT
  Sex: Female
  Weight: 40 kg

DRUGS (20)
  1. PROCRIT [Suspect]
     Indication: RENAL FAILURE CHRONIC
     Route: 058
     Dates: start: 20081215, end: 20081230
  2. ARICEPT [Concomitant]
     Route: 048
     Dates: start: 20081014
  3. ASPIRIN [Concomitant]
     Route: 048
     Dates: start: 20081014
  4. CELEXA [Concomitant]
     Route: 048
     Dates: start: 20081014, end: 20081218
  5. CELEXA [Concomitant]
     Route: 048
     Dates: start: 20081218, end: 20081226
  6. MULTI-VITAMINS [Concomitant]
     Route: 048
     Dates: start: 20081014
  7. CARDIZEM [Concomitant]
     Route: 048
     Dates: start: 20081014
  8. FOLIC ACID [Concomitant]
     Route: 048
     Dates: start: 20081014
  9. K-DUR [Concomitant]
     Route: 048
     Dates: start: 20081117
  10. SYNTHROID [Concomitant]
     Route: 048
     Dates: start: 20081014
  11. LISINOPRIL [Concomitant]
     Route: 048
     Dates: start: 20081014
  12. PRILOSEC [Concomitant]
     Route: 048
     Dates: start: 20081014
  13. BUMEX [Concomitant]
     Route: 048
     Dates: start: 20081123
  14. FERROUS SULFATE TAB [Concomitant]
     Route: 048
     Dates: start: 20081215
  15. REMERON [Concomitant]
     Route: 048
     Dates: start: 20081226
  16. IMODIUM [Concomitant]
     Route: 048
     Dates: start: 20081218
  17. BENTYL [Concomitant]
     Route: 048
     Dates: start: 20081218
  18. ATIVAN [Concomitant]
     Route: 048
     Dates: start: 20081014
  19. PHENERGAN HCL [Concomitant]
     Route: 048
     Dates: start: 20081118
  20. VICODIN [Concomitant]
     Route: 048
     Dates: start: 20081014

REACTIONS (1)
  - AORTIC EMBOLUS [None]
